FAERS Safety Report 16912271 (Version 1)
Quarter: 2019Q4

REPORT INFORMATION
  Report Type: Spontaneous
  Country: US (occurrence: US)
  Receive Date: 20191014
  Receipt Date: 20191014
  Transmission Date: 20200122
  Serious: No
  Sender: FDA-Public Use
  Company Number: US-JNJFOC-20190939769

PATIENT
  Sex: Female

DRUGS (2)
  1. CHILDRENS TYLENOL DISSOLVE PACKS, WILD BERRY FLAVOR [Suspect]
     Active Substance: ACETAMINOPHEN
     Indication: ANALGESIC THERAPY
     Dosage: 1 PACKET MIXED WITH PEDIALIYTE
     Route: 048
  2. PEDIALYTE                          /02069401/ [Concomitant]
     Indication: ANALGESIC THERAPY
     Route: 065

REACTIONS (2)
  - Wrong technique in product usage process [Unknown]
  - Product administered to patient of inappropriate age [Unknown]
